FAERS Safety Report 20491235 (Version 1)
Quarter: 2022Q1

REPORT INFORMATION
  Report Type: Spontaneous
  Country: US (occurrence: US)
  Receive Date: 20220218
  Receipt Date: 20220218
  Transmission Date: 20220423
  Serious: No
  Sender: FDA-Public Use
  Company Number: US-MIRM-000245

PATIENT
  Sex: Male

DRUGS (3)
  1. LIVMARLI [Suspect]
     Active Substance: MARALIXIBAT CHLORIDE
     Indication: Alagille syndrome
     Route: 048
     Dates: end: 20211213
  2. 1782417 (GLOBALC3Sep19): Lansoprazole [Concomitant]
     Indication: Product used for unknown indication
  3. 2379594 (GLOBALC3Sep19): Vitamins [Concomitant]
     Indication: Product used for unknown indication

REACTIONS (1)
  - Abdominal pain upper [Unknown]
